FAERS Safety Report 7271995 (Version 5)
Quarter: 2016Q1

REPORT INFORMATION
  Report Type: Spontaneous
  Country: US (occurrence: US)
  Receive Date: 20100205
  Receipt Date: 20160125
  Transmission Date: 20160526
  Serious: Yes (Hospitalization, Disabling)
  Sender: FDA-Public Use
  Company Number: US-BAYER-201012840NA

PATIENT
  Age: 39 Year
  Sex: Female
  Weight: 97.51 kg

DRUGS (28)
  1. Q-V TUSSIN [Concomitant]
     Dosage: UNK
     Dates: start: 20070110
  2. HYDROCODONE/ACETAMINOPHEN [Concomitant]
     Active Substance: ACETAMINOPHEN\HYDROCODONE
     Dosage: UNK
     Dates: start: 20061103
  3. BUTALBITAL W/ASPIRIN,CAFFEINE [Concomitant]
     Active Substance: ASPIRIN\BUTALBITAL\CAFFEINE
     Dosage: UNK
     Dates: start: 20061117
  4. YAZ [Suspect]
     Active Substance: DROSPIRENONE\ETHINYL ESTRADIOL
     Indication: CONTRACEPTION
     Dosage: UNK
     Route: 048
     Dates: start: 200610, end: 200702
  5. ADVIL [Concomitant]
     Active Substance: IBUPROFEN
     Indication: HEADACHE
     Dosage: UNK UNK, PRN
  6. NEXIUM [Concomitant]
     Active Substance: ESOMEPRAZOLE MAGNESIUM
  7. SYNTHROID [Concomitant]
     Active Substance: LEVOTHYROXINE SODIUM
     Indication: HYPOTHYROIDISM
     Dosage: UNK
     Dates: start: 20050919
  8. ADDERALL [Concomitant]
     Active Substance: AMPHETAMINE ASPARTATE\AMPHETAMINE SULFATE\DEXTROAMPHETAMINE SACCHARATE\DEXTROAMPHETAMINE SULFATE
     Dosage: UNK
     Dates: start: 20061212
  9. ZYRTEC [Concomitant]
     Active Substance: CETIRIZINE HYDROCHLORIDE
  10. DEMEROL [Concomitant]
     Active Substance: MEPERIDINE HYDROCHLORIDE
  11. ATROVENT [Concomitant]
     Active Substance: IPRATROPIUM BROMIDE
     Dosage: UNK
     Dates: start: 20061229
  12. CRESTOR [Concomitant]
     Active Substance: ROSUVASTATIN CALCIUM
     Dosage: UNK
     Dates: start: 20070129
  13. LESCOL [Concomitant]
     Active Substance: FLUVASTATIN SODIUM
     Dosage: UNK
  14. AVALIDE [Concomitant]
     Active Substance: HYDROCHLOROTHIAZIDE\IRBESARTAN
  15. LORTAB [Concomitant]
     Active Substance: ACETAMINOPHEN\HYDROCODONE BITARTRATE
     Dosage: UNK
     Dates: start: 20061230
  16. ATENOLOL. [Concomitant]
     Active Substance: ATENOLOL
     Dosage: UNK
     Dates: start: 20070129
  17. ZOVIRAX [Concomitant]
     Active Substance: ACYCLOVIR
  18. ULTRAM [Concomitant]
     Active Substance: TRAMADOL HYDROCHLORIDE
  19. OMNICEF [Concomitant]
     Active Substance: CEFDINIR
     Dosage: UNK
     Dates: start: 20061229
  20. PHENERGAN [Concomitant]
     Active Substance: PROMETHAZINE HYDROCHLORIDE
  21. ROCEPHIN [Concomitant]
     Active Substance: CEFTRIAXONE SODIUM
     Dosage: UNK
     Dates: start: 20061230
  22. RHINOCORT AQUA [Concomitant]
     Active Substance: BUDESONIDE
  23. ASPIRIN. [Concomitant]
     Active Substance: ASPIRIN
     Indication: HEADACHE
     Dosage: UNK UNK, PRN
  24. CEFZIL [Concomitant]
     Active Substance: CEFPROZIL
  25. P-V TUSSIN [Concomitant]
     Dosage: UNK
     Dates: start: 20070110
  26. DURAPHEN DM [Concomitant]
     Active Substance: DEXTROMETHORPHAN HYDROBROMIDE ANHYDROUS\GUAIFENESIN\PHENYLEPHRINE HYDROCHLORIDE
     Dosage: UNK
     Dates: start: 20061229
  27. DIOVAN [Concomitant]
     Active Substance: VALSARTAN
     Dosage: UNK
  28. MOBIC [Concomitant]
     Active Substance: MELOXICAM

REACTIONS (1)
  - Cerebrovascular accident [Unknown]

NARRATIVE: CASE EVENT DATE: 20070205
